FAERS Safety Report 16232512 (Version 1)
Quarter: 2019Q2

REPORT INFORMATION
  Report Type: Spontaneous
  Country: US (occurrence: US)
  Receive Date: 20190319
  Receipt Date: 20190319
  Transmission Date: 20190711
  Serious: Yes (Hospitalization)
  Sender: FDA-Public Use
  Company Number: None

PATIENT
  Age: 33 Year
  Sex: Male
  Weight: 76.5 kg

DRUGS (1)
  1. EXPAREL [Suspect]
     Active Substance: BUPIVACAINE
     Indication: LOCAL ANAESTHESIA
     Dosage: ?          OTHER ROUTE:TAP BLOCK?
     Dates: start: 20180215

REACTIONS (3)
  - Generalised tonic-clonic seizure [None]
  - Cardio-respiratory arrest [None]
  - Local anaesthetic systemic toxicity [None]

NARRATIVE: CASE EVENT DATE: 20180215
